FAERS Safety Report 20688178 (Version 2)
Quarter: 2022Q2

REPORT INFORMATION
  Report Type: Spontaneous
  Country: CA (occurrence: CA)
  Receive Date: 20220408
  Receipt Date: 20220413
  Transmission Date: 20220720
  Serious: Yes (Other)
  Sender: FDA-Public Use
  Company Number: ALC2022CA001671

PATIENT
  Age: 77 Year
  Sex: Female
  Weight: 40 kg

DRUGS (1)
  1. DIETARY SUPPLEMENT [Suspect]
     Active Substance: DIETARY SUPPLEMENT
     Indication: Glaucoma
     Dosage: 1.0 DOSAGE FORMS, 1 EVERY 12 HOURS
     Route: 048

REACTIONS (5)
  - Blindness transient [Recovered/Resolved]
  - Dizziness [Recovered/Resolved]
  - Eye irritation [Recovered/Resolved]
  - Eye pain [Recovered/Resolved]
  - Ocular hyperaemia [Recovered/Resolved]
